FAERS Safety Report 20596290 (Version 1)
Quarter: 2022Q1

REPORT INFORMATION
  Report Type: Spontaneous
  Country: US (occurrence: US)
  Receive Date: 20220315
  Receipt Date: 20220315
  Transmission Date: 20220423
  Serious: No
  Sender: FDA-Public Use
  Company Number: US-AMGEN-USASP2022042675

PATIENT
  Age: 67 Year
  Sex: Female

DRUGS (1)
  1. EVENITY [Suspect]
     Active Substance: ROMOSOZUMAB-AQQG
     Indication: Osteoporosis postmenopausal
     Dosage: 210 MILLIGRAM, QMO
     Route: 065
     Dates: start: 2021

REACTIONS (5)
  - Aphthous ulcer [Not Recovered/Not Resolved]
  - Oropharyngeal pain [Unknown]
  - Noninfective gingivitis [Unknown]
  - Urticaria [Unknown]
  - Oral mucosal erythema [Unknown]
